FAERS Safety Report 8174859-9 (Version None)
Quarter: 2012Q1

REPORT INFORMATION
  Report Type: 
  Country: None (occurrence: None)
  Receive Date: 20120229
  Receipt Date: 20110223
  Transmission Date: 20120608
  Serious: No
  Sender: FDA-Public Use
  Company Number: US-GLAXOSMITHKLINE-A0915985A

PATIENT
  Age: 46 Year
  Sex: Female

DRUGS (2)
  1. NO CONCURRENT MEDICATION [Concomitant]
  2. VALTREX [Suspect]
     Indication: GENITAL HERPES
     Dosage: 1G PER DAY
     Route: 048
     Dates: start: 20100101, end: 20101201

REACTIONS (1)
  - HERPES SIMPLEX [None]
